FAERS Safety Report 5503677-2 (Version None)
Quarter: 2007Q4

REPORT INFORMATION
  Report Type: 
  Country: None (occurrence: None)
  Receive Date: 20071101
  Receipt Date: 20071022
  Transmission Date: 20080405
  Serious: Yes (Disabling)
  Sender: FDA-Public Use
  Company Number: PHHO2007GB16416

PATIENT
  Age: 70 Year
  Sex: Male
  Weight: 52 kg

DRUGS (2)
  1. MYFORTIC VS EVEROLIMUS [Suspect]
     Indication: ORGAN TRANSPLANT
     Dosage: 1080 MG, BID
     Route: 048
     Dates: start: 20070927
  2. NEORAL [Suspect]
     Indication: ORGAN TRANSPLANT
     Route: 048

REACTIONS (1)
  - HALLUCINATION [None]
